FAERS Safety Report 23997985 (Version 1)
Quarter: 2024Q2

REPORT INFORMATION
  Report Type: Spontaneous
  Country: US (occurrence: US)
  Receive Date: 20240621
  Receipt Date: 20240621
  Transmission Date: 20240716
  Serious: No
  Sender: FDA-Public Use
  Company Number: US-SA-SAC20240614000523

PATIENT
  Age: 82 Year
  Sex: Female

DRUGS (15)
  1. DUPIXENT [Suspect]
     Active Substance: DUPILUMAB
     Indication: Dermatitis atopic
     Dosage: 300 MG, QOW
     Route: 058
  2. ARMOUR THYROID [Concomitant]
     Active Substance: THYROID, PORCINE
  3. ATORVASTATIN [Concomitant]
     Active Substance: ATORVASTATIN
  4. CALCIUM\VITAMIN D [Concomitant]
     Active Substance: CALCIUM\VITAMIN D
  5. CYMBALTA [Concomitant]
     Active Substance: DULOXETINE HYDROCHLORIDE
  6. GABAPENTIN [Concomitant]
     Active Substance: GABAPENTIN
  7. PANTOPRAZOLE [Concomitant]
     Active Substance: PANTOPRAZOLE
  8. PRAMIPEXOLE [Concomitant]
     Active Substance: PRAMIPEXOLE\PRAMIPEXOLE DIHYDROCHLORIDE
  9. PROLIA [Concomitant]
     Active Substance: DENOSUMAB
     Dosage: UNK UNK, PRN
  10. TEMAZEPAM [Concomitant]
     Active Substance: TEMAZEPAM
  11. TURMERIC [Concomitant]
     Active Substance: TURMERIC
  12. ASPIRIN [Concomitant]
     Active Substance: ASPIRIN
  13. CAYENNE [CAPSICUM SPP.] [Concomitant]
  14. MAGNESIUM [Concomitant]
     Active Substance: MAGNESIUM
  15. OMEGA-3 FATTY ACIDS [Concomitant]
     Active Substance: OMEGA-3 FATTY ACIDS

REACTIONS (1)
  - Fatigue [Unknown]

NARRATIVE: CASE EVENT DATE: 20240601
